FAERS Safety Report 10353121 (Version 2)
Quarter: 2014Q3

REPORT INFORMATION
  Report Type: Spontaneous
  Country: US (occurrence: US)
  Receive Date: 20140730
  Receipt Date: 20140811
  Transmission Date: 20150326
  Serious: Yes (Life-Threatening, Hospitalization, Other)
  Sender: FDA-Public Use
  Company Number: US-GILEAD-2014-0109988

PATIENT
  Age: 70 Year
  Sex: Female
  Weight: 68 kg

DRUGS (12)
  1. DIGOXIN. [Concomitant]
     Active Substance: DIGOXIN
     Dosage: 0.25 MG, EVERY M, W, F
  2. DIGOXIN. [Concomitant]
     Active Substance: DIGOXIN
     Dosage: 0.25 MG, EVERY M, F
  3. SPIRONOLACTONE. [Concomitant]
     Active Substance: SPIRONOLACTONE
  4. OLYSIO [Suspect]
     Active Substance: SIMEPREVIR
     Indication: HEPATITIS C
     Dosage: 1 DF, QD
     Route: 048
     Dates: start: 201404, end: 201406
  5. VIAGRA [Concomitant]
     Active Substance: SILDENAFIL CITRATE
  6. FUROSEMIDE. [Concomitant]
     Active Substance: FUROSEMIDE
  7. SOVALDI [Suspect]
     Active Substance: SOFOSBUVIR
     Indication: HEPATITIS C
     Dosage: UNK
     Route: 065
     Dates: start: 201404
  8. CARVEDILOL. [Concomitant]
     Active Substance: CARVEDILOL
  9. SCOPOLAMINE                        /00008701/ [Concomitant]
     Active Substance: SCOPOLAMINE
  10. ATACAND [Concomitant]
     Active Substance: CANDESARTAN CILEXETIL
  11. CHOLESTYRAMINE. [Concomitant]
     Active Substance: CHOLESTYRAMINE
  12. COUMADIN [Concomitant]
     Active Substance: WARFARIN SODIUM

REACTIONS (11)
  - Off label use [Recovered/Resolved]
  - Myocardial necrosis marker increased [Recovered/Resolved]
  - Renal disorder [Unknown]
  - Myoglobin blood increased [Unknown]
  - Arrhythmia [Unknown]
  - Drug dose omission [Recovered/Resolved]
  - Dyspnoea [Unknown]
  - Cardiac disorder [Unknown]
  - Cardiac failure [Unknown]
  - Pulmonary oedema [Unknown]
  - Heart injury [Unknown]

NARRATIVE: CASE EVENT DATE: 2014
